FAERS Safety Report 20097849 (Version 4)
Quarter: 2025Q2

REPORT INFORMATION
  Report Type: Report from Study
  Country: US (occurrence: US)
  Receive Date: 20211122
  Receipt Date: 20250513
  Transmission Date: 20250716
  Serious: Yes (Hospitalization, Other)
  Sender: TAKEDA
  Company Number: US-TAKEDA-US201916010

PATIENT
  Sex: Male

DRUGS (6)
  1. IDURSULFASE [Suspect]
     Active Substance: IDURSULFASE
     Indication: Mucopolysaccharidosis II
     Dosage: 8.5 MILLIGRAM, 1/WEEK
     Dates: start: 20170321
  2. IDURSULFASE [Suspect]
     Active Substance: IDURSULFASE
     Dosage: 9 MILLIGRAM, 1/WEEK
  3. IDURSULFASE [Suspect]
     Active Substance: IDURSULFASE
     Dosage: 12 MILLIGRAM, 1/WEEK
     Dates: start: 201703
  4. IDURSULFASE [Suspect]
     Active Substance: IDURSULFASE
     Dosage: 14 MILLIGRAM, 1/WEEK
     Dates: start: 201712
  5. IDURSULFASE [Suspect]
     Active Substance: IDURSULFASE
     Dosage: 12 MILLIGRAM, 1/WEEK
     Dates: start: 20210120
  6. IDURSULFASE [Suspect]
     Active Substance: IDURSULFASE
     Dosage: 14 MILLIGRAM, 1/WEEK

REACTIONS (6)
  - Vascular device infection [Unknown]
  - Abscess [Unknown]
  - Illness [Unknown]
  - Product dose omission issue [Unknown]
  - Weight increased [Unknown]
  - Influenza [Unknown]
